FAERS Safety Report 4742106-3 (Version None)
Quarter: 2005Q3

REPORT INFORMATION
  Report Type: 
  Country: None (occurrence: None)
  Receive Date: 20050808
  Receipt Date: 20050726
  Transmission Date: 20060218
  Serious: Yes (Other)
  Sender: FDA-Public Use
  Company Number: B0388666A

PATIENT
  Age: 30 Year
  Sex: Male

DRUGS (2)
  1. NAVELBINE [Suspect]
     Indication: LUNG ADENOCARCINOMA
  2. CISPLATIN [Concomitant]

REACTIONS (2)
  - DISSEMINATED INTRAVASCULAR COAGULATION [None]
  - NEUTROPENIC COLITIS [None]
